FAERS Safety Report 6072257-5 (Version None)
Quarter: 2009Q1

REPORT INFORMATION
  Report Type: 
  Country: None (occurrence: None)
  Receive Date: 20090206
  Receipt Date: 20090206
  Transmission Date: 20090719
  Serious: Yes (Life-Threatening, Hospitalization)
  Sender: FDA-Public Use
  Company Number: None

PATIENT
  Age: 48 Year
  Sex: Female
  Weight: 56.6996 kg

DRUGS (2)
  1. PAXIL [Suspect]
     Indication: ANXIETY
     Dosage: 5 MG BEFORE BEDTIME PO
     Route: 048
     Dates: start: 20090123, end: 20090127
  2. PAXIL [Suspect]
     Indication: DEPRESSION
     Dosage: 5 MG BEFORE BEDTIME PO
     Route: 048
     Dates: start: 20090123, end: 20090127

REACTIONS (5)
  - AKATHISIA [None]
  - INSOMNIA [None]
  - NAUSEA [None]
  - SUICIDAL IDEATION [None]
  - TACHYPHRENIA [None]
